FAERS Safety Report 8287657-2 (Version None)
Quarter: 2012Q2

REPORT INFORMATION
  Report Type: 
  Country: None (occurrence: None)
  Receive Date: 20120416
  Receipt Date: 20120411
  Transmission Date: 20120825
  Serious: Yes (Hospitalization)
  Sender: FDA-Public Use
  Company Number: PHHY2012ZA031244

PATIENT
  Age: 8 Year
  Sex: Male

DRUGS (3)
  1. RITALIN [Suspect]
     Dosage: 10 MG, UNK
     Dates: start: 20120101
  2. RITALIN [Suspect]
     Dosage: 10 MG, UNK
     Dates: start: 20120409
  3. RITALIN [Suspect]
     Dosage: 10 MG, UNK
     Dates: start: 20111101, end: 20111201

REACTIONS (1)
  - CARDIOVASCULAR DISORDER [None]
